FAERS Safety Report 4318394-4 (Version None)
Quarter: 2004Q1

REPORT INFORMATION
  Report Type: 
  Country: None (occurrence: None)
  Receive Date: 20040315
  Receipt Date: 20040301
  Transmission Date: 20041129
  Serious: Yes (Hospitalization)
  Sender: FDA-Public Use
  Company Number: NSADSS2003009676

PATIENT
  Age: 49 Year
  Sex: Female

DRUGS (18)
  1. INFLIXIMAB, RECOMBINANT [Suspect]
     Indication: RHEUMATOID ARTHRITIS
     Dosage: 3 MG/KG, 1 IN 1 AS NECESSARY, INTRAVENOUS DRIP
     Route: 041
     Dates: start: 20020716, end: 20020716
  2. INFLIXIMAB, RECOMBINANT [Suspect]
     Indication: RHEUMATOID ARTHRITIS
     Dosage: 3 MG/KG, 1 IN 1 AS NECESSARY, INTRAVENOUS DRIP
     Route: 041
     Dates: start: 20020730, end: 20020730
  3. INFLIXIMAB, RECOMBINANT [Suspect]
     Indication: RHEUMATOID ARTHRITIS
     Dosage: 3 MG/KG, 1 IN 1 AS NECESSARY, INTRAVENOUS DRIP
     Route: 041
     Dates: start: 20020827, end: 20020827
  4. INFLIXIMAB, RECOMBINANT [Suspect]
     Indication: RHEUMATOID ARTHRITIS
     Dosage: 3 MG/KG, 1 IN 1 AS NECESSARY, INTRAVENOUS DRIP
     Route: 041
     Dates: start: 20021022, end: 20021022
  5. INFLIXIMAB, RECOMBINANT [Suspect]
     Indication: RHEUMATOID ARTHRITIS
     Dosage: 3 MG/KG, 1 IN 1 AS NECESSARY, INTRAVENOUS DRIP
     Route: 041
     Dates: start: 20021217, end: 20021217
  6. INFLIXIMAB, RECOMBINANT [Suspect]
     Indication: RHEUMATOID ARTHRITIS
     Dosage: 3 MG/KG, 1 IN 1 AS NECESSARY, INTRAVENOUS DRIP
     Route: 041
     Dates: start: 20030114, end: 20030114
  7. INFLIXIMAB, RECOMBINANT [Suspect]
     Indication: RHEUMATOID ARTHRITIS
     Dosage: 3 MG/KG, 1 IN 1 AS NECESSARY, INTRAVENOUS DRIP
     Route: 041
     Dates: start: 20030218, end: 20030218
  8. IPSILON (AMINOCAPROIC ACID) [Concomitant]
  9. GASTROTEM (METOCLOPRAMIDE HYDROCHLORIDE) [Concomitant]
  10. HIDRENOX-A (AMILORIDE W/HYDROCHLOROTHIAZIDE) [Concomitant]
  11. PRIMOLUT NOR (NORETHISTERONE ACETATE) [Concomitant]
  12. ACETAMINOPHEN [Concomitant]
  13. METHOTREXATE [Concomitant]
  14. PREDNISONE [Concomitant]
  15. NAPROXEN [Concomitant]
  16. FOLIC ACID [Concomitant]
  17. BROMAZEPAM (BROMAZEPAM) [Concomitant]
  18. AMLODIPINE [Concomitant]

REACTIONS (6)
  - ADENOMYOSIS [None]
  - CERVICITIS [None]
  - ENDOMETRIAL ATROPHY [None]
  - MALIGNANT HISTIOCYTOSIS [None]
  - OVARIAN CANCER [None]
  - OVARIAN CYST [None]
